FAERS Safety Report 16798745 (Version 1)
Quarter: 2019Q3

REPORT INFORMATION
  Report Type: Spontaneous
  Country: JP (occurrence: JP)
  Receive Date: 20190912
  Receipt Date: 20190912
  Transmission Date: 20191005
  Serious: Yes (Other)
  Sender: FDA-Public Use
  Company Number: JP-PFIZER INC-2019371346

PATIENT
  Weight: 1.66 kg

DRUGS (13)
  1. DOXORUBICIN HCL [Suspect]
     Active Substance: DOXORUBICIN HYDROCHLORIDE
     Dosage: UNK, 8TH COURSE WAS ADMINISTERED ON JANUARY 31 (35 WEEKS AND 2 DAYS)
     Route: 064
  2. VINCRISTINE [Suspect]
     Active Substance: VINCRISTINE
     Indication: PRIMARY MEDIASTINAL LARGE B-CELL LYMPHOMA
     Dosage: 1.4 MG/M2, CYCLIC, DAY-1 ON AUGUST 22 (AT 12 WEEKS AND 1 DAY OF PREGNANCY)
     Route: 064
  3. PREDNISOLONE. [Suspect]
     Active Substance: PREDNISOLONE
     Indication: PRIMARY MEDIASTINAL LARGE B-CELL LYMPHOMA
     Dosage: 1 G, CYCLIC, DAY 1-3, STARTED ON AUGUST 18 (AT 11 WEEKS AND 4 DAYS INTO THE PREGNANCY)
     Route: 064
  4. RITUXIMAB. [Suspect]
     Active Substance: RITUXIMAB
     Dosage: UNK, 8TH COURSE WAS ADMINISTERED ON JANUARY 31 (35 WEEKS AND 2 DAYS)
     Route: 064
  5. CYCLOPHOSPHAMIDE. [Suspect]
     Active Substance: CYCLOPHOSPHAMIDE
     Dosage: UNK, 8TH COURSE WAS ADMINISTERED ON JANUARY 31 (35 WEEKS AND 2 DAYS)
     Route: 064
  6. VINCRISTINE [Suspect]
     Active Substance: VINCRISTINE
     Dosage: 1.4 MG/M2, CYCLIC, DAY-1 (ON SEPTEMBER 2 (AT 13 WEEKS AND 5 DAYS OF PREGNANCY)
     Route: 064
  7. CYCLOPHOSPHAMIDE. [Suspect]
     Active Substance: CYCLOPHOSPHAMIDE
     Dosage: 750 MG/M2, CYCLIC, DAY-1 ON SEPTEMBER 2 (AT 13 WEEKS AND 5 DAYS OF PREGNANCY)
     Route: 064
  8. PREDNISOLONE. [Suspect]
     Active Substance: PREDNISOLONE
     Dosage: 100 MG, CYCLIC, DAY 1-5 ON SEPTEMBER 2 (AT 13 WEEKS AND 5 DAYS OF PREGNANCY)
     Route: 064
  9. RITUXIMAB. [Suspect]
     Active Substance: RITUXIMAB
     Indication: PRIMARY MEDIASTINAL LARGE B-CELL LYMPHOMA
     Dosage: 375 MG/M2, CYCLIC, DAY-1 ON SEPTEMBER 2 (AT 13 WEEKS AND 5 DAYS OF PREGNANCY)
     Route: 064
  10. CYCLOPHOSPHAMIDE. [Suspect]
     Active Substance: CYCLOPHOSPHAMIDE
     Indication: PRIMARY MEDIASTINAL LARGE B-CELL LYMPHOMA
     Dosage: 750 MG/M2, CYCLIC, DAY-1 ON AUGUST 22 (AT 12 WEEKS AND 1 DAY OF PREGNANCY)
     Route: 064
  11. PREDNISOLONE. [Suspect]
     Active Substance: PREDNISOLONE
     Dosage: UNK, 8TH COURSE WAS ADMINISTERED ON JANUARY 31 (35 WEEKS AND 2 DAYS)
     Route: 064
  12. DOXORUBICIN HCL [Suspect]
     Active Substance: DOXORUBICIN HYDROCHLORIDE
     Indication: PRIMARY MEDIASTINAL LARGE B-CELL LYMPHOMA
     Dosage: 50 MG/M2, UNK, DAY-1 (ON SEPTEMBER 2 (AT 13 WEEKS AND 5 DAYS OF PREGNANCY)
     Route: 064
  13. VINCRISTINE [Suspect]
     Active Substance: VINCRISTINE
     Dosage: UNK, 8TH COURSE WAS ADMINISTERED ON JANUARY 31 (35 WEEKS AND 2 DAYS)
     Route: 064

REACTIONS (3)
  - Maternal exposure during pregnancy [Unknown]
  - Low birth weight baby [Unknown]
  - Premature baby [Unknown]
